FAERS Safety Report 10383668 (Version 1)
Quarter: 2014Q1

REPORT INFORMATION
  Report Type: Spontaneous
  Country: US (occurrence: None)
  Receive Date: 20140306
  Receipt Date: 20140306
  Transmission Date: 20141002
  Serious: Yes (Hospitalization, Other)
  Sender: FDA-Public Use
  Company Number: 163-21880-13081326

PATIENT
  Age: 76 Year
  Sex: Female

DRUGS (14)
  1. REVLIMID (LENALIDOMIDE) (CAPSULES) [Suspect]
     Indication: PLASMA CELL MYELOMA
     Dosage: ALT 10MG, 15MG, 21 IN 28 D, PO
     Route: 048
     Dates: start: 20130715, end: 201308
  2. LISINOPRIL [Concomitant]
  3. VALTREX (VALACICLOVIR HYDROCHLORIDE) [Concomitant]
  4. PRILOSEC (OMEPRAZOLE) [Concomitant]
  5. CITALOPRAM [Concomitant]
  6. VITAMIN D (ERGOCALCIFEROL) [Concomitant]
  7. LOVASTATIN [Concomitant]
  8. OMEPRAZOLE [Concomitant]
  9. VITAMIN B12 (CYANOCOBALAMIN) [Concomitant]
  10. AMBIEN (ZOLPIDEM TARTRATE) [Concomitant]
  11. CENTRUM SILVER [Concomitant]
  12. CALCIUM [Concomitant]
  13. DEXAMETHASONE [Concomitant]
  14. HEPARIN [Concomitant]

REACTIONS (3)
  - Pancytopenia [None]
  - Gastrointestinal haemorrhage [None]
  - Melaena [None]
